APPROVED DRUG PRODUCT: ACTRON
Active Ingredient: KETOPROFEN
Strength: 12.5MG
Dosage Form/Route: TABLET;ORAL
Application: N020499 | Product #001
Applicant: BAYER HEALTHCARE LLC
Approved: Oct 6, 1995 | RLD: No | RS: No | Type: DISCN